FAERS Safety Report 11611288 (Version 1)
Quarter: 2015Q4

REPORT INFORMATION
  Report Type: Spontaneous
  Country: US (occurrence: US)
  Receive Date: 20151008
  Receipt Date: 20151008
  Transmission Date: 20160304
  Serious: Yes (Hospitalization, Other)
  Sender: FDA-Public Use
  Company Number: US-PFIZER INC-2015328387

PATIENT
  Age: 81 Year
  Sex: Female
  Weight: 68 kg

DRUGS (10)
  1. GABAPENTIN. [Suspect]
     Active Substance: GABAPENTIN
     Indication: HYPERHIDROSIS
  2. FLEXERIL [Suspect]
     Active Substance: CYCLOBENZAPRINE HYDROCHLORIDE
     Indication: PAIN
     Dosage: UNK, AS NEEDED
     Dates: end: 201505
  3. GABAPENTIN. [Suspect]
     Active Substance: GABAPENTIN
     Indication: SPINAL COLUMN STENOSIS
     Dosage: ONE PILL
     Route: 048
     Dates: start: 201508, end: 2015
  4. NEURONTIN [Suspect]
     Active Substance: GABAPENTIN
     Dosage: UNK
     Dates: end: 201505
  5. TIZANIDINE HCL [Suspect]
     Active Substance: TIZANIDINE HYDROCHLORIDE
     Indication: PAIN
     Dosage: 4 MG, UNK
     Route: 048
     Dates: start: 20150216, end: 201505
  6. GABAPENTIN. [Suspect]
     Active Substance: GABAPENTIN
     Indication: PAIN
     Dosage: 100MG 1 POSSIBLY 2 CAPSULES A DAY
     Route: 048
     Dates: start: 20150512, end: 2015
  7. FLEXERIL [Suspect]
     Active Substance: CYCLOBENZAPRINE HYDROCHLORIDE
     Indication: MUSCLE RELAXANT THERAPY
  8. PROZAC [Suspect]
     Active Substance: FLUOXETINE HYDROCHLORIDE
     Indication: DEPRESSION
     Dosage: 30 OR 50MG CAPSULE, 1 A DAY
     Route: 048
     Dates: end: 201505
  9. GABAPENTIN. [Suspect]
     Active Substance: GABAPENTIN
     Indication: PAIN IN EXTREMITY
  10. XANAX [Suspect]
     Active Substance: ALPRAZOLAM
     Indication: ANXIETY
     Dosage: 1 MG ^CAPSULE^ ONE IN MORNING AND IF NEEDED 1 IN THE EVENING
     Route: 048
     Dates: end: 201505

REACTIONS (19)
  - Dementia [Unknown]
  - Abnormal behaviour [Unknown]
  - Delusion [Unknown]
  - Dry mouth [Unknown]
  - Paraesthesia [Not Recovered/Not Resolved]
  - Speech disorder [Unknown]
  - Tremor [Unknown]
  - Hallucination [Unknown]
  - Eye disorder [Not Recovered/Not Resolved]
  - Fall [Recovered/Resolved]
  - Product use issue [Unknown]
  - Condition aggravated [Not Recovered/Not Resolved]
  - Hyperhidrosis [Recovering/Resolving]
  - Night sweats [Recovering/Resolving]
  - Rib fracture [Recovered/Resolved]
  - Drug withdrawal syndrome [Unknown]
  - Diabetes mellitus [Not Recovered/Not Resolved]
  - Neuropathy peripheral [Unknown]
  - Pain [Unknown]

NARRATIVE: CASE EVENT DATE: 2015
